FAERS Safety Report 8217315-1 (Version None)
Quarter: 2012Q1

REPORT INFORMATION
  Report Type: 
  Country: None (occurrence: None)
  Receive Date: 20120313
  Receipt Date: 20120302
  Transmission Date: 20120608
  Serious: Yes (Hospitalization)
  Sender: FDA-Public Use
  Company Number: DKLU1077477

PATIENT
  Age: 33 Year
  Sex: Female

DRUGS (5)
  1. TOPIRAMATE [Suspect]
     Indication: PRODUCT USED FOR UNKNOWN INDICATION
     Dosage: 200 MG MILLIGRAM(S), 1 IN 1 D, ORAL
     Route: 048
     Dates: start: 20110301
  2. LEVOTHYROXINE SODIUM [Concomitant]
  3. GARDENAL (PHENOBARBITAL) (200 MG) [Suspect]
     Indication: PRODUCT USED FOR UNKNOWN INDICATION
     Dosage: 200 MG MILLIGRAM(S), 1 IN 1 D, ORAL
     Route: 048
     Dates: start: 20110301
  4. VIMPAT [Suspect]
     Indication: PRODUCT USED FOR UNKNOWN INDICATION
     Dosage: 100 MG MILLIGRAM(S), 1 IN 1 D, ORAL
     Route: 048
     Dates: start: 20110301
  5. ONFI (CLOBAZAM) (CLOBAZAM) (30 MG) [Suspect]
     Indication: PRODUCT USED FOR UNKNOWN INDICATION
     Dosage: 30 MG MILLIGRAM(S), 1 IN 1 D, ORAL
     Route: 048
     Dates: start: 20110301

REACTIONS (2)
  - MALAISE [None]
  - HYPOGLYCAEMIA [None]
